FAERS Safety Report 5750302-1 (Version None)
Quarter: 2008Q2

REPORT INFORMATION
  Report Type: 
  Country: None (occurrence: None)
  Receive Date: 20080522
  Receipt Date: 20080522
  Transmission Date: 20081010
  Serious: Yes (Hospitalization, Disabling)
  Sender: FDA-Public Use
  Company Number: None

PATIENT
  Age: 19 Year
  Sex: Female
  Weight: 54.4316 kg

DRUGS (2)
  1. TRAMACET [Suspect]
     Indication: OVARIAN CYST
     Dosage: 1-2 PILLS EVERY 6 HOURS? PO
     Route: 048
     Dates: start: 20071005, end: 20071005
  2. TRAMACET [Suspect]
     Indication: PAIN
     Dosage: 1-2 PILLS EVERY 6 HOURS? PO
     Route: 048
     Dates: start: 20071005, end: 20071005

REACTIONS (2)
  - DYSPNOEA [None]
  - TREMOR [None]
